FAERS Safety Report 12947976 (Version 1)
Quarter: 2016Q4

REPORT INFORMATION
  Report Type: Spontaneous
  Country: US (occurrence: US)
  Receive Date: 20161116
  Receipt Date: 20161116
  Transmission Date: 20170207
  Serious: Yes (Life-Threatening, Other)
  Sender: FDA-Public Use
  Company Number: PHEH2016US029483

PATIENT
  Sex: Female

DRUGS (4)
  1. FEMARA [Suspect]
     Active Substance: LETROZOLE
     Dosage: UNK (HALF TABLET)
     Route: 065
     Dates: start: 201607
  2. FEMARA [Suspect]
     Active Substance: LETROZOLE
     Indication: PRODUCT USED FOR UNKNOWN INDICATION
     Dosage: UNK
     Route: 065
     Dates: start: 201605
  3. FEMARA [Suspect]
     Active Substance: LETROZOLE
     Dosage: UNK (FULL DOSE)
     Route: 065
     Dates: start: 20160720
  4. LETROZOLE. [Suspect]
     Active Substance: LETROZOLE
     Indication: PRODUCT USED FOR UNKNOWN INDICATION
     Dosage: UNK
     Route: 065

REACTIONS (9)
  - Movement disorder [Unknown]
  - Musculoskeletal stiffness [Unknown]
  - Depression [Unknown]
  - Feeling abnormal [Unknown]
  - Depressed level of consciousness [Unknown]
  - Malaise [Unknown]
  - Anxiety [Unknown]
  - Pain [Unknown]
  - General physical health deterioration [Unknown]
